FAERS Safety Report 14818871 (Version 3)
Quarter: 2018Q2

REPORT INFORMATION
  Report Type: Spontaneous
  Country: FR (occurrence: FR)
  Receive Date: 20180427
  Receipt Date: 20180621
  Transmission Date: 20180711
  Serious: Yes (Death, Other)
  Sender: FDA-Public Use
  Company Number: FR-AUROBINDO-AUR-APL-2018-021254

PATIENT
  Age: 42 Year
  Sex: Male
  Weight: 55 kg

DRUGS (10)
  1. KETAMINE [Suspect]
     Active Substance: KETAMINE
     Indication: GENERAL ANAESTHESIA
     Dosage: 20 MG, SINGLE, IN TOTAL
     Route: 041
     Dates: start: 20180328
  2. DROPERIDOL. [Suspect]
     Active Substance: DROPERIDOL
     Indication: PROPHYLAXIS OF NAUSEA AND VOMITING
     Dosage: 0.63 G, SINGLE, IN TOTAL
     Route: 041
     Dates: start: 20180328
  3. ACUPAN [Suspect]
     Active Substance: NEFOPAM HYDROCHLORIDE
     Indication: ANALGESIC INTERVENTION SUPPORTIVE THERAPY
     Dosage: 1 TOTAL
     Route: 041
     Dates: start: 20180328
  4. DEXAMETHASONE. [Suspect]
     Active Substance: DEXAMETHASONE
     Indication: PROPHYLAXIS OF NAUSEA AND VOMITING
     Dosage: 8 G, SINGLE, IN TOTAL
     Route: 041
     Dates: start: 20180328
  5. PARACETAMOL [Suspect]
     Active Substance: ACETAMINOPHEN
     Indication: ANALGESIC INTERVENTION SUPPORTIVE THERAPY
     Dosage: 1 G, SINGLE, IN TOTAL
     Route: 041
     Dates: start: 20180328
  6. ONDANSETRON [Suspect]
     Active Substance: ONDANSETRON
     Indication: PROPHYLAXIS OF NAUSEA AND VOMITING
     Dosage: 4 MG, SINGLE, IN TOTAL
     Route: 041
     Dates: start: 20180328
  7. NIMBEX [Suspect]
     Active Substance: CISATRACURIUM BESYLATE
     Indication: GENERAL ANAESTHESIA
     Dosage: 7 MILLIGRAM, TOTAL
     Route: 041
     Dates: start: 20180328
  8. PROPOFOL. [Suspect]
     Active Substance: PROPOFOL
     Indication: GENERAL ANAESTHESIA
     Dosage: 200 MG, SINGLE, IN TOTAL
     Route: 041
     Dates: start: 20180328
  9. MORPHINE [Suspect]
     Active Substance: MORPHINE
     Indication: ANALGESIC INTERVENTION SUPPORTIVE THERAPY
     Dosage: 8 MG, SINGLE, IN TOTAL
     Route: 041
     Dates: start: 20180328
  10. ROPIVACAINE HYDROCHLORIDE MONOHYDRATE [Suspect]
     Active Substance: ROPIVACAINE HYDROCHLORIDE
     Indication: ANALGESIC INTERVENTION SUPPORTIVE THERAPY
     Dosage: 1 TOTAL
     Route: 041
     Dates: start: 20180328

REACTIONS (2)
  - Hypoxic-ischaemic encephalopathy [Fatal]
  - Cardio-respiratory arrest [Fatal]

NARRATIVE: CASE EVENT DATE: 20180328
